FAERS Safety Report 8837932 (Version 1)
Quarter: 2012Q4

REPORT INFORMATION
  Report Type: 
  Country: US (occurrence: US)
  Receive Date: 20121012
  Receipt Date: 20121012
  Transmission Date: 20130627
  Serious: Yes (Hospitalization)
  Sender: FDA-Public Use
  Company Number: US-ROCHE-1130434

PATIENT
  Sex: Female

DRUGS (1)
  1. NUTROPIN [Suspect]
     Indication: TURNER^S SYNDROME

REACTIONS (2)
  - Bacterial infection [Unknown]
  - Oedema peripheral [Unknown]
